FAERS Safety Report 6894392-1 (Version None)
Quarter: 2010Q3

REPORT INFORMATION
  Report Type: 
  Country: None (occurrence: None)
  Receive Date: 20100723
  Receipt Date: 20100713
  Transmission Date: 20110219
  Serious: Yes (Other)
  Sender: FDA-Public Use
  Company Number: GER/UKI/10/0014171

PATIENT
  Age: 63 Year
  Sex: Female

DRUGS (11)
  1. PRAVASTATIN [Suspect]
     Indication: HYPERCHOLESTEROLAEMIA
     Dosage: 40 MG, ORAL
     Route: 048
  2. ASPIRIN [Concomitant]
  3. BENDROFLUAZIDE (BENDROFLUMETHIZIDE) [Concomitant]
  4. DOSULEPIN HYDROCHLORIDE (DOSULEPIN HYDROCHLORIDE) [Concomitant]
  5. DOXAZOSIN MESYLATE [Concomitant]
  6. GLICLAZIDE (GLICLAZIDE) [Concomitant]
  7. GLUCOSAMINE HYDROCHLORIDE (GLUCOSAMINE HYDROCHOLRIDE) [Concomitant]
  8. LISINOPRIL [Concomitant]
  9. PROCHLORPERAZINE MALEATE [Concomitant]
  10. PROPRALOL (PROPRANOLOL HYDROCHLORIDE) [Concomitant]
  11. ROSIGLITAZONE [Concomitant]

REACTIONS (3)
  - DIPLOPIA [None]
  - DIZZINESS [None]
  - MACULAR DEGENERATION [None]
